FAERS Safety Report 4305489-4 (Version None)
Quarter: 2004Q1

REPORT INFORMATION
  Report Type: 
  Country: None (occurrence: None)
  Receive Date: 20040226
  Receipt Date: 20031020
  Transmission Date: 20041129
  Serious: No
  Sender: FDA-Public Use
  Company Number: US-BRISTOL-MYERS SQUIBB COMPANY-12415030

PATIENT
  Age: 17 Year
  Sex: Female
  Weight: 59 kg

DRUGS (5)
  1. ABILIFY [Suspect]
     Indication: BIPOLAR DISORDER
     Dosage: INITIALLY 5 MG/DAY, ^QUICKLY TITRATED UP TO 10 MG/DAY^.
     Route: 048
     Dates: start: 20030117, end: 20030512
  2. ABILIFY [Suspect]
     Indication: AGITATION
     Dosage: INITIALLY 5 MG/DAY, ^QUICKLY TITRATED UP TO 10 MG/DAY^.
     Route: 048
     Dates: start: 20030117, end: 20030512
  3. TRILEPTAL [Concomitant]
  4. ADDERALL [Concomitant]
  5. GABITRIL [Concomitant]

REACTIONS (1)
  - WEIGHT INCREASED [None]
